FAERS Safety Report 11178104 (Version 1)
Quarter: 2015Q2

REPORT INFORMATION
  Report Type: Spontaneous
  Country: US (occurrence: None)
  Receive Date: 20150515
  Receipt Date: 20150515
  Transmission Date: 20150821
  Serious: Yes (Hospitalization)
  Sender: FDA-Public Use
  Company Number: 120610

PATIENT
  Age: 72 Year
  Sex: Female
  Weight: 72.5 kg

DRUGS (7)
  1. LIALDA (MESALAZINE) TABLET [Concomitant]
  2. TRAZADOME (TRAZODONE) [Concomitant]
  3. PROBIOTIC (LACTOBACILLUS REUTERI) [Concomitant]
  4. CITALOFRAM (CITALOPRAM) [Concomitant]
  5. LORAZEPAM. [Concomitant]
     Active Substance: LORAZEPAM
  6. LYRICA [Concomitant]
     Active Substance: PREGABALIN
  7. CIMZIA [Suspect]
     Active Substance: CERTOLIZUMAB PEGOL
     Indication: CROHN^S DISEASE
     Dosage: 400 MG, EV 2 WEEKS (QOW), SUBCUTANEOUS
     Route: 058
     Dates: start: 20140308

REACTIONS (1)
  - Herpes zoster [None]

NARRATIVE: CASE EVENT DATE: 20140415
